FAERS Safety Report 8582338-X (Version None)
Quarter: 2012Q3

REPORT INFORMATION
  Report Type: 
  Country: None (occurrence: None)
  Receive Date: 20120809
  Receipt Date: 20120803
  Transmission Date: 20120928
  Serious: Yes (Hospitalization)
  Sender: FDA-Public Use
  Company Number: US-ROCHE-1078137

PATIENT
  Sex: Male
  Weight: 71 kg

DRUGS (5)
  1. PEGASYS [Suspect]
     Indication: HEPATITIS C
     Dosage: MOST RECENT DOSE:27/APR/2012
     Dates: start: 20120330
  2. COPEGUS [Suspect]
     Indication: HEPATITIS C
     Dosage: MOST RECENT DOSE:02/MAY/2012
     Dates: start: 20120330
  3. DEMECLOCYCLINE HCL [Concomitant]
  4. TELAPREVIR [Suspect]
     Indication: HEPATITIS C
     Dosage: MOST RECENT DOSE: 02/MAY/2012
     Dates: start: 20120330
  5. NADOLOL [Concomitant]
     Indication: PORTAL HYPERTENSION
     Route: 042

REACTIONS (4)
  - PANCYTOPENIA [None]
  - FATIGUE [None]
  - DYSPNOEA [None]
  - ASTHENIA [None]
